FAERS Safety Report 5962533-6 (Version None)
Quarter: 2008Q4

REPORT INFORMATION
  Report Type: 
  Country: None (occurrence: None)
  Receive Date: 20081121
  Receipt Date: 20081112
  Transmission Date: 20090506
  Serious: Yes (Death)
  Sender: FDA-Public Use
  Company Number: CN-PFIZER INC-2008095533

PATIENT
  Sex: Male

DRUGS (2)
  1. SULPERAZON [Suspect]
     Indication: LUNG INFECTION
     Route: 042
     Dates: start: 20080101
  2. VANCOMYCIN [Concomitant]
     Route: 042
     Dates: start: 20080101

REACTIONS (2)
  - LUNG INFECTION [None]
  - MEDICATION ERROR [None]
